FAERS Safety Report 5712324-6 (Version None)
Quarter: 2008Q2

REPORT INFORMATION
  Report Type: 
  Country: None (occurrence: None)
  Receive Date: 20080417
  Receipt Date: 20080402
  Transmission Date: 20081010
  Serious: Yes (Death)
  Sender: FDA-Public Use
  Company Number: 08-193

PATIENT
  Sex: Male

DRUGS (1)
  1. FAZACLO ODT [Suspect]
     Dosage: 400 MG PO DAILY
     Route: 048
     Dates: start: 20070202, end: 20080201

REACTIONS (1)
  - INTESTINAL OBSTRUCTION [None]
